FAERS Safety Report 20443674 (Version 1)
Quarter: 2022Q1

REPORT INFORMATION
  Report Type: Spontaneous
  Country: US (occurrence: None)
  Receive Date: 20220208
  Receipt Date: 20220208
  Transmission Date: 20220424
  Serious: Yes (Hospitalization)
  Sender: FDA-Public Use
  Company Number: None

PATIENT
  Sex: Female

DRUGS (4)
  1. BOTOX [Suspect]
     Active Substance: ONABOTULINUMTOXINA
     Indication: Migraine
     Dosage: OTHER FREQUENCY : 90 DAYS;?INJECT UP TO 200 UNITS INTO THE CERVICAL MUSCLES EVERY 90 DAYS?
     Route: 030
     Dates: start: 20151016
  2. ALEVE TAB [Concomitant]
  3. METHOTREXATE [Concomitant]
     Active Substance: METHOTREXATE
  4. TYLENOL TAB [Concomitant]

REACTIONS (1)
  - Endometrial cancer [None]
